FAERS Safety Report 4824419-X (Version None)
Quarter: 2005Q4

REPORT INFORMATION
  Report Type: 
  Country: None (occurrence: None)
  Receive Date: 20051108
  Receipt Date: 20051025
  Transmission Date: 20060501
  Serious: Yes (Hospitalization, Other)
  Sender: FDA-Public Use
  Company Number: USA0510110704

PATIENT
  Age: 55 Year
  Sex: Female
  Weight: 48 kg

DRUGS (20)
  1. STRATTERA [Suspect]
     Indication: DISTURBANCE IN ATTENTION
     Dosage: 80 MG
     Dates: start: 20040918, end: 20050910
  2. EVISTA [Concomitant]
  3. PAXIL [Concomitant]
  4. REMERON [Concomitant]
  5. KLONOPIN [Concomitant]
  6. ALFERON N (INTERFERON ALFA) [Concomitant]
  7. BACLOFEN [Concomitant]
  8. PROVIGIL [Concomitant]
  9. ATENOLOL [Concomitant]
  10. DETROL [Concomitant]
  11. NORVASC [Concomitant]
  12. ACTONEL [Concomitant]
  13. TUMS ULTRA (CALCIUM CARBONATE) [Concomitant]
  14. CLOTRIMAZOLE [Concomitant]
  15. LUMIGAN [Concomitant]
  16. ASCORBIC ACID [Concomitant]
  17. MULTI-VITAMIN [Concomitant]
  18. TYLENOL [Concomitant]
  19. APO-IBUPROFEN (IBUPROFEN) [Concomitant]
  20. HYDROCHLOROTHIAZIDE [Concomitant]

REACTIONS (18)
  - AGITATION [None]
  - ASTHENIA [None]
  - CANDIDIASIS [None]
  - CONDITION AGGRAVATED [None]
  - CONFUSIONAL STATE [None]
  - CONSTIPATION [None]
  - CONVULSION [None]
  - COORDINATION ABNORMAL [None]
  - DELIRIUM [None]
  - DIZZINESS [None]
  - ESCHERICHIA URINARY TRACT INFECTION [None]
  - FALL [None]
  - FATIGUE [None]
  - FLAT AFFECT [None]
  - INAPPROPRIATE ANTIDIURETIC HORMONE SECRETION [None]
  - MULTIPLE SCLEROSIS [None]
  - PATHOGEN RESISTANCE [None]
  - PELVIC FRACTURE [None]
